FAERS Safety Report 25048791 (Version 1)
Quarter: 2025Q1

REPORT INFORMATION
  Report Type: Spontaneous
  Country: US (occurrence: US)
  Receive Date: 20250307
  Receipt Date: 20250307
  Transmission Date: 20250408
  Serious: Yes (Hospitalization, Other)
  Sender: GERON CORP
  Company Number: US-GERON CORPORATION-US-GER-25-000051

PATIENT
  Age: 73 Year
  Sex: Male
  Weight: 87.982 kg

DRUGS (2)
  1. RYTELO [Suspect]
     Active Substance: IMETELSTAT SODIUM
     Indication: Myelodysplastic syndrome
     Route: 042
     Dates: start: 20241003, end: 20241003
  2. RYTELO [Suspect]
     Active Substance: IMETELSTAT SODIUM
     Route: 042
     Dates: start: 20241119

REACTIONS (3)
  - Haemoglobin decreased [Recovered/Resolved]
  - White blood cell count decreased [Recovered/Resolved]
  - Platelet count decreased [Recovered/Resolved]

NARRATIVE: CASE EVENT DATE: 20241031
